FAERS Safety Report 8763666 (Version 1)
Quarter: 2012Q4

REPORT INFORMATION
  Report Type: Spontaneous
  Country: US (occurrence: None)
  Receive Date: 20120831
  Receipt Date: 20120831
  Transmission Date: 20130627
  Serious: Yes (Death)
  Sender: FDA-Public Use
  Company Number: None

PATIENT
  Age: 75 Year
  Sex: Male
  Weight: 90.3 kg

DRUGS (1)
  1. RIVAROXABAN 10 MG JANSSEN [Suspect]
     Indication: DVT PROPHYLAXIS
     Dosage: 3 doses
     Dates: start: 20120717, end: 20120719

REACTIONS (2)
  - Haemoglobin decreased [None]
  - Gastrointestinal haemorrhage [None]
